FAERS Safety Report 25126478 (Version 1)
Quarter: 2025Q1

REPORT INFORMATION
  Report Type: Spontaneous
  Country: US (occurrence: US)
  Receive Date: 20250327
  Receipt Date: 20250327
  Transmission Date: 20250408
  Serious: No
  Sender: ELI LILLY AND COMPANY
  Company Number: US-ELI_LILLY_AND_COMPANY-US202503020666

PATIENT
  Sex: Female

DRUGS (8)
  1. MOUNJARO [Suspect]
     Active Substance: TIRZEPATIDE
     Indication: Diabetes mellitus
     Route: 058
  2. MOUNJARO [Suspect]
     Active Substance: TIRZEPATIDE
     Indication: Diabetes mellitus
     Route: 058
  3. MOUNJARO [Suspect]
     Active Substance: TIRZEPATIDE
     Indication: Diabetes mellitus
     Route: 058
  4. MOUNJARO [Suspect]
     Active Substance: TIRZEPATIDE
     Indication: Diabetes mellitus
     Route: 058
  5. MOUNJARO [Suspect]
     Active Substance: TIRZEPATIDE
     Indication: Medical diet
  6. MOUNJARO [Suspect]
     Active Substance: TIRZEPATIDE
     Indication: Medical diet
  7. MOUNJARO [Suspect]
     Active Substance: TIRZEPATIDE
     Indication: Medical diet
  8. MOUNJARO [Suspect]
     Active Substance: TIRZEPATIDE
     Indication: Medical diet

REACTIONS (2)
  - Accidental underdose [Unknown]
  - Product storage error [Unknown]
